FAERS Safety Report 4630222-6 (Version None)
Quarter: 2005Q2

REPORT INFORMATION
  Report Type: 
  Country: None (occurrence: None)
  Receive Date: 20050406
  Receipt Date: 20050322
  Transmission Date: 20051028
  Serious: Yes (Other)
  Sender: FDA-Public Use
  Company Number: DSA_26199_2005

PATIENT
  Age: 63 Year
  Sex: Female

DRUGS (1)
  1. TILDIEM [Suspect]
     Indication: HYPERTENSION
     Dosage: DF

REACTIONS (2)
  - HEPATIC FIBROSIS [None]
  - HEPATIC STEATOSIS [None]
